FAERS Safety Report 9878824 (Version 1)
Quarter: 2014Q1

REPORT INFORMATION
  Report Type: Spontaneous
  Country: IT (occurrence: IT)
  Receive Date: 20140206
  Receipt Date: 20140206
  Transmission Date: 20141002
  Serious: Yes (Hospitalization)
  Sender: FDA-Public Use
  Company Number: IT-GLAXOSMITHKLINE-B0966463A

PATIENT
  Age: 75 Year
  Sex: Female

DRUGS (8)
  1. LAMICTAL [Suspect]
     Indication: EPILEPSY
     Dosage: 250MG PER DAY
     Route: 048
  2. LANSOX [Concomitant]
     Route: 048
  3. DILATREND [Concomitant]
  4. LASIX [Concomitant]
  5. ENAPREN [Concomitant]
  6. ZOLOFT [Concomitant]
  7. TORVAST [Concomitant]
  8. CARDIOASPIRIN [Concomitant]

REACTIONS (2)
  - Cardiac failure [Recovered/Resolved]
  - Epilepsy [Recovered/Resolved]
